FAERS Safety Report 8555109 (Version 3)
Quarter: 2012Q4

REPORT INFORMATION
  Report Type: 
  Country: US (occurrence: US)
  Receive Date: 20120510
  Receipt Date: 20120913
  Transmission Date: 20130627
  Serious: Yes (Hospitalization, Other)
  Sender: FDA-Public Use
  Company Number: PHEH2012US009353

PATIENT
  Age: 63 Year
  Sex: Female
  Weight: 71.2 kg

DRUGS (13)
  1. GILENYA [Suspect]
     Indication: RELAPSING-REMITTING MULTIPLE SCLEROSIS
     Dosage: 0.5 mg, QD
     Route: 048
     Dates: start: 201103, end: 201204
  2. INDERAL LA [Suspect]
     Dosage: 80 mg, QD
     Route: 048
     Dates: start: 20120611, end: 20120824
  3. NORVASC [Concomitant]
     Dosage: 1 DF, QD
     Route: 048
     Dates: start: 20110824
  4. RESTASIS [Concomitant]
     Dosage: 1 drp in both eyes, BID
  5. ENABLEX [Concomitant]
     Dosage: 1 DF, QD
     Route: 048
  6. ARTHROTEC [Concomitant]
     Dosage: 75-0.2 mg
     Route: 048
  7. VIBRA-TABS [Concomitant]
     Dosage: 1 DF, BID
     Route: 048
  8. PREMARIN [Concomitant]
     Dosage: 1 DF, QD
     Route: 048
  9. ARTIFICIAL TEARS [Concomitant]
     Dosage: 1 drp into both eyes, BID
  10. CYANOCOBALAMIN [Concomitant]
     Dosage: 1 DF, QD
     Route: 048
  11. CALCIUM WITH VITAMIN D [Concomitant]
     Dosage: 1 DF, QD
     Route: 048
  12. FERROUS SULPHATE [Concomitant]
     Dosage: 325 mg, QD, with breakfast
     Route: 048
  13. ZANAFLEX [Concomitant]
     Dosage: 1 mg, QD
     Route: 048

REACTIONS (32)
  - Renal cell carcinoma stage IV [Not Recovered/Not Resolved]
  - Pyrexia [Not Recovered/Not Resolved]
  - Night sweats [Unknown]
  - Hyperhidrosis [Unknown]
  - Weight decreased [Unknown]
  - Metastases to lung [Not Recovered/Not Resolved]
  - Metastases to bone [Not Recovered/Not Resolved]
  - Renal mass [Unknown]
  - Back pain [Unknown]
  - Optic atrophy [Not Recovered/Not Resolved]
  - Hypotension [Recovered/Resolved]
  - Anosmia [Not Recovered/Not Resolved]
  - Plantar fasciitis [Not Recovered/Not Resolved]
  - Osteoarthritis [Not Recovered/Not Resolved]
  - Balance disorder [Unknown]
  - Protein total decreased [Unknown]
  - Vitamin B12 increased [Unknown]
  - Eosinophil count increased [Unknown]
  - Red cell distribution width increased [Unknown]
  - Mean cell haemoglobin decreased [Unknown]
  - Mean cell volume decreased [Unknown]
  - Monocyte count increased [Unknown]
  - Tendonitis [Not Recovered/Not Resolved]
  - Blood glucose increased [Unknown]
  - Visual acuity reduced [Unknown]
  - Tremor [Unknown]
  - Concomitant disease aggravated [Unknown]
  - Hypertension [Not Recovered/Not Resolved]
  - White blood cell count decreased [Unknown]
  - Lymphocyte count decreased [Unknown]
  - Alanine aminotransferase increased [Unknown]
  - Aspartate aminotransferase increased [Unknown]
